FAERS Safety Report 25978031 (Version 2)
Quarter: 2025Q4

REPORT INFORMATION
  Report Type: Spontaneous
  Country: US (occurrence: US)
  Receive Date: 20251030
  Receipt Date: 20251126
  Transmission Date: 20260118
  Serious: No
  Sender: ELI LILLY AND COMPANY
  Company Number: US-ELI_LILLY_AND_COMPANY-US202510024475

PATIENT
  Age: 71 Year
  Sex: Male

DRUGS (9)
  1. KISUNLA [Suspect]
     Active Substance: DONANEMAB-AZBT
     Indication: Dementia Alzheimer^s type
     Dosage: 700 MG, MONTHLY (1/M)
     Route: 042
     Dates: start: 20250521
  2. KISUNLA [Suspect]
     Active Substance: DONANEMAB-AZBT
     Indication: Cognitive disorder
     Dosage: 700 MG, MONTHLY (1/M)
     Route: 042
     Dates: start: 20250618
  3. KISUNLA [Suspect]
     Active Substance: DONANEMAB-AZBT
     Dosage: 700 MG, MONTHLY (1/M)
     Route: 042
     Dates: start: 20250729, end: 20250729
  4. KISUNLA [Suspect]
     Active Substance: DONANEMAB-AZBT
     Dosage: 1400 MG, MONTHLY (1/M)
     Route: 042
     Dates: start: 20250827
  5. KISUNLA [Suspect]
     Active Substance: DONANEMAB-AZBT
     Dosage: 1400 MG, MONTHLY (1/M)
     Route: 042
     Dates: start: 20250924
  6. ESCITALOPRAM [Concomitant]
     Active Substance: ESCITALOPRAM OXALATE
     Indication: Depression
     Dosage: UNK UNK, UNKNOWN
     Route: 065
  7. DONEPEZIL [Concomitant]
     Active Substance: DONEPEZIL
     Indication: Cognitive disorder
     Dosage: UNK UNK, UNKNOWN
     Route: 065
  8. PEPCID [Concomitant]
     Active Substance: FAMOTIDINE
     Indication: Gastrooesophageal reflux disease
     Dosage: UNK UNK, UNKNOWN
     Route: 065
  9. ROSUVASTATIN [Concomitant]
     Active Substance: ROSUVASTATIN
     Indication: Hyperlipidaemia
     Dosage: UNK UNK, UNKNOWN
     Route: 065

REACTIONS (2)
  - Sinus disorder [Unknown]
  - Amyloid related imaging abnormality-oedema/effusion [Recovering/Resolving]

NARRATIVE: CASE EVENT DATE: 20250611
